FAERS Safety Report 7589777-4 (Version None)
Quarter: 2011Q3

REPORT INFORMATION
  Report Type: 
  Country: None (occurrence: None)
  Receive Date: 20110705
  Receipt Date: 20110620
  Transmission Date: 20111222
  Serious: Yes (Hospitalization)
  Sender: FDA-Public Use
  Company Number: HR-WATSON-2011-09847

PATIENT
  Age: 34 Year
  Sex: Female

DRUGS (1)
  1. OXAZEPAM [Suspect]
     Indication: STRESS
     Dosage: 150 MG, DAILY

REACTIONS (3)
  - DRUG DEPENDENCE [None]
  - DRUG EFFECT DECREASED [None]
  - IRRITABILITY [None]
